FAERS Safety Report 9058727 (Version 2)
Quarter: 2013Q4

REPORT INFORMATION
  Report Type: Spontaneous
  Country: US (occurrence: US)
  Receive Date: 20130204
  Receipt Date: 20131226
  Transmission Date: 20140711
  Serious: Yes (Other)
  Sender: FDA-Public Use
  Company Number: US-BAYER-2013-013984

PATIENT
  Age: 27 Year
  Sex: Female
  Weight: 155.74 kg

DRUGS (9)
  1. YAZ [Suspect]
     Dosage: UNK
     Dates: start: 20031112
  2. YASMIN [Suspect]
     Dosage: UNK
     Dates: start: 20031112
  3. OCELLA [Suspect]
     Dosage: UNK
     Dates: start: 20031112
  4. COLESTID [Concomitant]
     Dosage: 2 GRAMS TWICE DAILY
     Dates: start: 20080529, end: 20080926
  5. SSD [Concomitant]
     Dosage: 1% UNK
     Dates: start: 20080609
  6. BENICAR HCT [Concomitant]
     Dosage: 40-12.5 MG DAILY
     Dates: start: 20080613, end: 20080910
  7. SYNTHROID [Concomitant]
     Dosage: 50 MCG, UNK
     Dates: start: 20080613, end: 20080910
  8. BENTYL [Concomitant]
     Dosage: 20 MG, DAILY
     Dates: start: 20080613, end: 20080715
  9. PRILOSEC [Concomitant]
     Dosage: 20 MG, DAILY
     Dates: start: 20080715, end: 20080814

REACTIONS (8)
  - Gallbladder injury [None]
  - Cholecystitis chronic [None]
  - Injury [None]
  - Pain [None]
  - General physical health deterioration [None]
  - Emotional distress [None]
  - Pain [None]
  - Anxiety [None]
